FAERS Safety Report 6619069-9 (Version None)
Quarter: 2010Q1

REPORT INFORMATION
  Report Type: 
  Country: None (occurrence: None)
  Receive Date: 20100308
  Receipt Date: 20100225
  Transmission Date: 20100710
  Serious: Yes (Hospitalization, Other)
  Sender: FDA-Public Use
  Company Number: US-ROCHE-688987

PATIENT
  Sex: Female

DRUGS (4)
  1. AVASTIN [Suspect]
     Route: 065
     Dates: start: 20100101, end: 20100216
  2. FOLFIRI REGIMEN [Suspect]
     Route: 065
  3. FOLFOX REGIMEN [Concomitant]
  4. FOLFOX REGIMEN [Concomitant]

REACTIONS (2)
  - HERNIA [None]
  - OBSTRUCTION [None]
